FAERS Safety Report 22321220 (Version 1)
Quarter: 2023Q2

REPORT INFORMATION
  Report Type: Spontaneous
  Country: US (occurrence: US)
  Receive Date: 20230515
  Receipt Date: 20230515
  Transmission Date: 20230721
  Serious: No
  Sender: FDA-Public Use
  Company Number: US-BAYER-2023A058129

PATIENT
  Age: 65 Year
  Sex: Male

DRUGS (1)
  1. NUBEQA [Suspect]
     Active Substance: DAROLUTAMIDE
     Dates: start: 20230405, end: 20230424

REACTIONS (7)
  - Joint swelling [None]
  - Peripheral swelling [None]
  - Arthralgia [None]
  - Pain in extremity [None]
  - Weight increased [None]
  - Heart rate increased [None]
  - Fluid retention [None]

NARRATIVE: CASE EVENT DATE: 20230401
